FAERS Safety Report 16153193 (Version 1)
Quarter: 2019Q2

REPORT INFORMATION
  Report Type: Spontaneous
  Country: FR (occurrence: FR)
  Receive Date: 20190403
  Receipt Date: 20190403
  Transmission Date: 20190711
  Serious: Yes (Other)
  Sender: FDA-Public Use
  Company Number: FR-ACCORD-117382

PATIENT
  Age: 44 Year
  Sex: Male

DRUGS (4)
  1. FLUOROURACIL. [Suspect]
     Active Substance: FLUOROURACIL
     Indication: RECTAL ADENOCARCINOMA
     Dosage: UNSPECIFIED
     Route: 042
     Dates: start: 20181219, end: 20190107
  2. OXALIPLATIN. [Suspect]
     Active Substance: OXALIPLATIN
     Indication: RECTAL ADENOCARCINOMA
     Dosage: UNSPECIFIED
     Route: 042
     Dates: start: 20181219, end: 20190107
  3. IRINOTECAN [Suspect]
     Active Substance: IRINOTECAN
     Indication: RECTAL ADENOCARCINOMA
     Dosage: UNSPECIFIED
     Route: 042
     Dates: start: 20181219, end: 20190107
  4. INNOHEP [Suspect]
     Active Substance: TINZAPARIN SODIUM
     Indication: SUBCLAVIAN VEIN THROMBOSIS
     Route: 058
     Dates: start: 20190107, end: 20190116

REACTIONS (1)
  - Hypertransaminasaemia [Not Recovered/Not Resolved]

NARRATIVE: CASE EVENT DATE: 20190114
